FAERS Safety Report 7975620-8 (Version None)
Quarter: 2011Q4

REPORT INFORMATION
  Report Type: 
  Country: None (occurrence: None)
  Receive Date: 20111213
  Receipt Date: 20111004
  Transmission Date: 20120403
  Serious: No
  Sender: FDA-Public Use
  Company Number: US-AMGEN-USASP2011051189

PATIENT
  Age: 67 Year
  Sex: Female

DRUGS (2)
  1. ENBREL [Suspect]
     Indication: RHEUMATOID ARTHRITIS
     Dosage: 50 MG, QWK
     Dates: start: 20110818
  2. PLAQUENIL [Concomitant]
     Dosage: UNK
     Dates: start: 20110805

REACTIONS (2)
  - RHEUMATOID ARTHRITIS [None]
  - INJECTION SITE RASH [None]
